FAERS Safety Report 4449283-2 (Version None)
Quarter: 2004Q3

REPORT INFORMATION
  Report Type: 
  Country: None (occurrence: None)
  Receive Date: 20040913
  Receipt Date: 20040908
  Transmission Date: 20050211
  Serious: Yes (Hospitalization)
  Sender: FDA-Public Use
  Company Number: KII-2000-0007460

PATIENT
  Age: 20 Year
  Sex: Male

DRUGS (2)
  1. MS CONTIN [Suspect]
     Indication: PAIN
     Dosage: SEE IMAGE
  2. PERCOCET [Suspect]
     Indication: PAIN

REACTIONS (1)
  - SICKLE CELL ANAEMIA WITH CRISIS [None]
